FAERS Safety Report 4434076-2 (Version None)
Quarter: 2004Q3

REPORT INFORMATION
  Report Type: 
  Country: None (occurrence: None)
  Receive Date: 20040825
  Receipt Date: 20040809
  Transmission Date: 20050211
  Serious: Yes (Hospitalization)
  Sender: FDA-Public Use
  Company Number: FR_040804594

PATIENT
  Age: 69 Year
  Sex: Female
  Weight: 48 kg

DRUGS (1)
  1. EVISTA [Suspect]
     Indication: BONE DISORDER
     Dosage: 60 MG/1 DAY
     Dates: start: 20030415, end: 20040215

REACTIONS (1)
  - HEPATOCELLULAR DAMAGE [None]
